FAERS Safety Report 4653115-7 (Version None)
Quarter: 2005Q2

REPORT INFORMATION
  Report Type: 
  Country: None (occurrence: None)
  Receive Date: 20050503
  Receipt Date: 20050420
  Transmission Date: 20051028
  Serious: Yes (Death, Other)
  Sender: FDA-Public Use
  Company Number: 2005053843

PATIENT
  Age: 71 Year
  Sex: Female

DRUGS (1)
  1. VFEND [Suspect]
     Indication: FUNGAL INFECTION
     Dosage: 600 MG (300 MG, 2 IN 1 D), INTRAVENOUS
     Route: 042

REACTIONS (3)
  - CLOSTRIDIUM BACTERAEMIA [None]
  - FEBRILE NEUTROPENIA [None]
  - SEPSIS [None]
